FAERS Safety Report 7078853-0 (Version None)
Quarter: 2010Q4

REPORT INFORMATION
  Report Type: 
  Country: None (occurrence: None)
  Receive Date: 20101021
  Receipt Date: 20101013
  Transmission Date: 20110411
  Serious: Yes (Hospitalization)
  Sender: FDA-Public Use
  Company Number: 020249

PATIENT
  Sex: Female

DRUGS (9)
  1. VIMPAT [Suspect]
     Indication: OPTIC NEUROPATHY
     Dosage: (100 MG BID ORAL), (50 MG BID ORAL)
     Route: 048
     Dates: start: 20091101, end: 20100528
  2. VIMPAT [Suspect]
     Indication: OPTIC NEUROPATHY
     Dosage: (100 MG BID ORAL), (50 MG BID ORAL)
     Route: 048
     Dates: start: 20100705
  3. NEURONTIN [Suspect]
     Indication: OPTIC NEUROPATHY
     Dosage: (800 MG BID ORAL)
     Route: 048
     Dates: start: 19960101
  4. EPITOMAX (EPITOMAX) [Suspect]
     Indication: OPTIC NEUROPATHY
     Dosage: (200 MG BID ORAL)
     Route: 048
     Dates: start: 20000101
  5. URBANYL (URBANYL) (NOT SPECIFIED) [Suspect]
     Dosage: (ORAL)
     Route: 048
     Dates: start: 20000101, end: 20090101
  6. TEGRETOL [Suspect]
     Dosage: (ORAL)
     Route: 048
     Dates: start: 19960101, end: 20000101
  7. LAMICTAL [Suspect]
     Dosage: (ORAL)
     Route: 048
     Dates: start: 19960101, end: 19990101
  8. RIVOTRIL (RIVOTRIL) (NOT SPECIFIED) [Suspect]
     Dosage: (4 DROPS DAILY ORAL)
     Route: 048
     Dates: start: 20090901, end: 20091101
  9. TEGELINE /00025201/ (TEGELINE) [Suspect]
     Dosage: (20 G, 10G / 200 ML INTRAVENOUS))
     Route: 042

REACTIONS (2)
  - CONDITION AGGRAVATED [None]
  - OPTIC NEUROPATHY [None]
